FAERS Safety Report 12396238 (Version 1)
Quarter: 2016Q2

REPORT INFORMATION
  Report Type: Report from Study
  Country: UY (occurrence: UY)
  Receive Date: 20160524
  Receipt Date: 20160524
  Transmission Date: 20160815
  Serious: Yes (Death)
  Sender: FDA-Public Use
  Company Number: UY-ROCHE-1659594

PATIENT
  Sex: Female

DRUGS (4)
  1. XELODA [Suspect]
     Active Substance: CAPECITABINE
     Indication: BREAST CANCER
     Route: 048
     Dates: start: 20151024
  2. TRAMADOL. [Concomitant]
     Active Substance: TRAMADOL
  3. LAPATINIB [Concomitant]
     Active Substance: LAPATINIB
  4. KETOFEN [Concomitant]
     Active Substance: KETOPROFEN

REACTIONS (6)
  - Blister [Unknown]
  - Disease progression [Fatal]
  - Skin fissures [Unknown]
  - Dry skin [Unknown]
  - Lip pain [Unknown]
  - Drug ineffective [Unknown]
